FAERS Safety Report 24890882 (Version 4)
Quarter: 2025Q3

REPORT INFORMATION
  Report Type: Report from Study
  Country: US (occurrence: US)
  Receive Date: 20250127
  Receipt Date: 20250809
  Transmission Date: 20251021
  Serious: Yes (Other)
  Sender: ALEXION PHARMACEUTICALS
  Company Number: US-AstraZeneca-CH-00792116A

PATIENT
  Sex: Female

DRUGS (2)
  1. ULTOMIRIS [Suspect]
     Active Substance: RAVULIZUMAB-CWVZ
     Indication: Paroxysmal nocturnal haemoglobinuria
     Route: 065
  2. LASIX [Suspect]
     Active Substance: FUROSEMIDE
     Route: 065

REACTIONS (12)
  - Breast cancer [Recovered/Resolved]
  - Loss of consciousness [Unknown]
  - Multiple fractures [Unknown]
  - Oedema peripheral [Unknown]
  - Malaise [Unknown]
  - Vomiting [Unknown]
  - Pulmonary mass [Unknown]
  - Lymphoedema [Unknown]
  - Cough [Unknown]
  - Stress [Unknown]
  - Nausea [Unknown]
  - Cold sweat [Unknown]

NARRATIVE: CASE EVENT DATE: 20240101
